FAERS Safety Report 12618354 (Version 1)
Quarter: 2016Q3

REPORT INFORMATION
  Report Type: Report from Study
  Country: VN (occurrence: VN)
  Receive Date: 20160803
  Receipt Date: 20160803
  Transmission Date: 20161109
  Serious: Yes (Hospitalization)
  Sender: FDA-Public Use
  Company Number: VN-009507513-1607VNM011076

PATIENT
  Age: 65 Year
  Sex: Female

DRUGS (2)
  1. COZAAR [Suspect]
     Active Substance: LOSARTAN POTASSIUM
     Dosage: 50 MG (1 TABLET) DAILY
     Route: 048
     Dates: start: 20150901, end: 2016
  2. COZAAR [Suspect]
     Active Substance: LOSARTAN POTASSIUM
     Dosage: 50 MG (1 TABLET) IN THE MORNING AND IN THE AFTERNOON
     Route: 048
     Dates: start: 2016

REACTIONS (2)
  - Inappropriate schedule of drug administration [Unknown]
  - Hypertension [Recovering/Resolving]

NARRATIVE: CASE EVENT DATE: 2016
